FAERS Safety Report 8392037-5 (Version None)
Quarter: 2012Q2

REPORT INFORMATION
  Report Type: 
  Country: None (occurrence: None)
  Receive Date: 20120529
  Receipt Date: 20120518
  Transmission Date: 20120825
  Serious: Yes (Hospitalization, Other)
  Sender: FDA-Public Use
  Company Number: DE-BRISTOL-MYERS SQUIBB COMPANY-16396251

PATIENT
  Age: 68 Year
  Sex: Male

DRUGS (6)
  1. DEXAMETHASONE [Concomitant]
  2. DEXAMETHASONE [Concomitant]
  3. YERVOY [Suspect]
     Indication: MALIGNANT MELANOMA
     Dosage: 2ND DOSE:14DEC2011; 3RD DOSE:04JAN2012
     Dates: start: 20111124
  4. OMEPRAZOLE [Concomitant]
  5. LOPERAMIDE [Concomitant]
  6. PANTOPRAZOLE [Concomitant]

REACTIONS (4)
  - COLITIS [None]
  - DEEP VEIN THROMBOSIS [None]
  - NEOPLASM MALIGNANT [None]
  - PULMONARY EMBOLISM [None]
